FAERS Safety Report 7608215-6 (Version None)
Quarter: 2011Q3

REPORT INFORMATION
  Report Type: 
  Country: None (occurrence: None)
  Receive Date: 20110714
  Receipt Date: 20110615
  Transmission Date: 20111222
  Serious: Yes (Hospitalization)
  Sender: FDA-Public Use
  Company Number: LB-JNJFOC-20110703969

PATIENT
  Age: 50 Year
  Sex: Female
  Weight: 68 kg

DRUGS (4)
  1. PREDNISOLONE [Concomitant]
     Dosage: FOR 15 YEARS  STOPPED PREDNISOLONE TREATMENT 3 MONTHS AGO
     Dates: end: 20110301
  2. REMICADE [Suspect]
     Indication: RHEUMATOID ARTHRITIS
     Dosage: 2 VIALS  REMICADE TREATMENT: FOR THE LAST TWO YEARS
     Route: 042
  3. METHOTREXATE [Concomitant]
  4. REMICADE [Suspect]
     Dosage: 2 VIALS  LAST DOSE TAKEN 4 MONTHS AGO
     Route: 042
     Dates: start: 20110201

REACTIONS (1)
  - LARGE INTESTINAL ULCER HAEMORRHAGE [None]
